FAERS Safety Report 24910437 (Version 1)
Quarter: 2025Q1

REPORT INFORMATION
  Report Type: Spontaneous
  Country: US (occurrence: None)
  Receive Date: 20250131
  Receipt Date: 20250131
  Transmission Date: 20250409
  Serious: No
  Sender: MEDUNIK USA
  Company Number: US-CTRS-202500015

PATIENT
  Sex: Female

DRUGS (1)
  1. SIKLOS [Suspect]
     Active Substance: HYDROXYUREA
     Indication: Product used for unknown indication

REACTIONS (1)
  - Alopecia [Not Recovered/Not Resolved]
